FAERS Safety Report 4827441-2 (Version None)
Quarter: 2005Q4

REPORT INFORMATION
  Report Type: 
  Country: None (occurrence: None)
  Receive Date: 20051114
  Receipt Date: 20051108
  Transmission Date: 20060501
  Serious: Yes (Life-Threatening)
  Sender: FDA-Public Use
  Company Number: 2005AC01777

PATIENT
  Age: 22 Month
  Sex: Female
  Weight: 10 kg

DRUGS (1)
  1. XYLOCAINE VISCOUS [Suspect]
     Indication: STOMATITIS
     Dosage: 50 MG/KG
     Route: 048

REACTIONS (9)
  - ACCIDENTAL OVERDOSE [None]
  - ASPIRATION [None]
  - BLOOD PH DECREASED [None]
  - CONVULSION [None]
  - HYPERTENSION [None]
  - INCORRECT ROUTE OF DRUG ADMINISTRATION [None]
  - PYREXIA [None]
  - RESPIRATORY ARREST [None]
  - TACHYCARDIA [None]
